FAERS Safety Report 9520672 (Version 1)
Quarter: 2013Q3

REPORT INFORMATION
  Report Type: Spontaneous
  Country: US (occurrence: DE)
  Receive Date: 20130913
  Receipt Date: 20130913
  Transmission Date: 20140515
  Serious: Yes (Life-Threatening, Hospitalization)
  Sender: FDA-Public Use
  Company Number: 2013SP006490

PATIENT
  Sex: Male
  Weight: 80 kg

DRUGS (5)
  1. VANCOMYCIN [Suspect]
     Indication: SEPSIS
     Route: 042
  2. PIP/TAZO [Concomitant]
     Indication: RESPIRATORY FAILURE
  3. IMIPENEM [Concomitant]
     Indication: RESPIRATORY FAILURE
  4. DOXYCYCLINE [Concomitant]
     Indication: PROPHYLAXIS
  5. PANTOPRAZOLE SODIUM [Concomitant]
     Indication: PROPHYLAXIS

REACTIONS (2)
  - Gastrointestinal haemorrhage [Not Recovered/Not Resolved]
  - Thrombocytopenia [Not Recovered/Not Resolved]
